FAERS Safety Report 15227103 (Version 2)
Quarter: 2018Q3

REPORT INFORMATION
  Report Type: Spontaneous
  Country: US (occurrence: US)
  Receive Date: 20180801
  Receipt Date: 20180802
  Transmission Date: 20181010
  Serious: No
  Sender: FDA-Public Use
  Company Number: US-PFIZER INC-2018306940

PATIENT
  Age: 42 Year
  Sex: Female
  Weight: 81.63 kg

DRUGS (4)
  1. LYRICA [Suspect]
     Active Substance: PREGABALIN
     Indication: FIBROMYALGIA
     Dosage: 50 MG, 2X/DAY
  2. LYRICA [Suspect]
     Active Substance: PREGABALIN
     Dosage: 150 MG, DAILY (50MG IN THE MORNING AND 100MG AT NIGHT)
  3. HYDROCODONE/ACETAMINOPHEN [Concomitant]
     Active Substance: ACETAMINOPHEN\HYDROCODONE
     Indication: FIBROMYALGIA
     Dosage: UNK, 4X/DAY (HYDROCODONE BITARTRATE: 5; PARACETAMOL: 325) (5?325 TABLET UP TO FOUR A DAY)
  4. HYDROCODONE/ACETAMINOPHEN [Concomitant]
     Active Substance: ACETAMINOPHEN\HYDROCODONE
     Dosage: UNK, 2X/DAY (HYDROCODONE BITARTRATE: 5; PARACETAMOL: 325)

REACTIONS (6)
  - Feeling abnormal [Not Recovered/Not Resolved]
  - Weight increased [Unknown]
  - Loss of personal independence in daily activities [Unknown]
  - Peripheral swelling [Not Recovered/Not Resolved]
  - Pain [Not Recovered/Not Resolved]
  - Confusional state [Not Recovered/Not Resolved]

NARRATIVE: CASE EVENT DATE: 2018
